FAERS Safety Report 19503906 (Version 2)
Quarter: 2021Q3

REPORT INFORMATION
  Report Type: Spontaneous
  Country: NZ (occurrence: NZ)
  Receive Date: 20210707
  Receipt Date: 20210716
  Transmission Date: 20211014
  Serious: Yes (Hospitalization)
  Sender: FDA-Public Use
  Company Number: NZ-MYLANLABS-2021M1040149

PATIENT
  Sex: Female

DRUGS (2)
  1. CLOZARIL [Suspect]
     Active Substance: CLOZAPINE
     Indication: SCHIZOPHRENIA
     Dosage: UNK
     Route: 048
     Dates: start: 20171026, end: 20210613
  2. CLOZARIL [Interacting]
     Active Substance: CLOZAPINE
     Dosage: TITRATED UP FROM 50MG
     Route: 048
     Dates: start: 20210617

REACTIONS (3)
  - Drug interaction [Unknown]
  - Metabolic acidosis [Unknown]
  - Acute kidney injury [Unknown]
